FAERS Safety Report 17076974 (Version 1)
Quarter: 2019Q4

REPORT INFORMATION
  Report Type: Spontaneous
  Country: FR (occurrence: FR)
  Receive Date: 20191126
  Receipt Date: 20191126
  Transmission Date: 20200122
  Serious: Yes (Other)
  Sender: FDA-Public Use
  Company Number: FR-MYLANLABS-2019M1114966

PATIENT
  Age: 12 Month
  Sex: Female
  Weight: 12 kg

DRUGS (3)
  1. VANCOMYCIN [Suspect]
     Active Substance: VANCOMYCIN
     Indication: DEVICE RELATED INFECTION
     Dosage: DOSE DE CHARGE 25 MG/KG PUIS 15 MG/KG/24 H
     Route: 042
     Dates: start: 20190906, end: 20190910
  2. GENTAMICINE                        /00047101/ [Suspect]
     Active Substance: GENTAMICIN
     Indication: DEVICE RELATED INFECTION
     Dosage: 5 MILLIGRAM/KILOGRAM, QD
     Route: 042
     Dates: start: 20190906, end: 20190907
  3. ORBENINE [Suspect]
     Active Substance: CLOXACILLIN SODIUM
     Indication: DEVICE RELATED INFECTION
     Dosage: 100 MILLIGRAM/KILOGRAM, QD
     Route: 042
     Dates: start: 20190906, end: 20190909

REACTIONS (3)
  - Anaemia [Recovered/Resolved]
  - Platelet count decreased [Recovered/Resolved]
  - Neutropenia [Recovered/Resolved]

NARRATIVE: CASE EVENT DATE: 20190909
